FAERS Safety Report 10605588 (Version 1)
Quarter: 2014Q4

REPORT INFORMATION
  Report Type: Report from Study
  Country: NL (occurrence: NL)
  Receive Date: 20141124
  Receipt Date: 20141124
  Transmission Date: 20150529
  Serious: Yes (Other)
  Sender: FDA-Public Use
  Company Number: NL-AMGEN-NLDSL2013094648

PATIENT
  Age: 58 Year
  Sex: Female

DRUGS (2)
  1. DEXAMETHASON                       /00016001/ [Concomitant]
     Active Substance: DEXAMETHASONE
     Dosage: UNK
  2. NEULASTA [Suspect]
     Active Substance: PEGFILGRASTIM
     Indication: PRODUCT USED FOR UNKNOWN INDICATION
     Dosage: 10 MG/ML, Q3WK
     Route: 065

REACTIONS (14)
  - Eye inflammation [Unknown]
  - Herpes zoster [Unknown]
  - Bedridden [Unknown]
  - Headache [Unknown]
  - Oral fungal infection [Unknown]
  - Memory impairment [Unknown]
  - Asthenia [Unknown]
  - Bone pain [Unknown]
  - Dysgeusia [Unknown]
  - Hypoaesthesia [Unknown]
  - Fatigue [Unknown]
  - Muscular weakness [Unknown]
  - Myalgia [Unknown]
  - Gamma-glutamyltransferase increased [Unknown]
